FAERS Safety Report 5506431-0 (Version None)
Quarter: 2007Q4

REPORT INFORMATION
  Report Type: 
  Country: None (occurrence: None)
  Receive Date: 20071101
  Receipt Date: 20071101
  Transmission Date: 20080405
  Serious: Yes (Other)
  Sender: FDA-Public Use
  Company Number: None

PATIENT
  Age: 46 Year
  Sex: Female
  Weight: 51.7101 kg

DRUGS (1)
  1. CHANTIX [Suspect]
     Indication: SMOKING CESSATION THERAPY
     Dosage: ONE 1 MG TABLET  2 TIWCE PER DAY  PO
     Route: 048
     Dates: start: 20070419, end: 20071022

REACTIONS (10)
  - AGGRESSION [None]
  - ANGER [None]
  - ARRHYTHMIA [None]
  - ARTHRALGIA [None]
  - CRYING [None]
  - DEPRESSION [None]
  - MOOD SWINGS [None]
  - MUSCULOSKELETAL PAIN [None]
  - NICOTINE DEPENDENCE [None]
  - SLEEP DISORDER [None]
